FAERS Safety Report 10280668 (Version 28)
Quarter: 2015Q4

REPORT INFORMATION
  Report Type: Report from Study
  Country: US (occurrence: US)
  Receive Date: 20140707
  Receipt Date: 20151202
  Transmission Date: 20160304
  Serious: Yes (Hospitalization, Other)
  Sender: FDA-Public Use
  Company Number: US-ALEXION-A201402633

PATIENT
  Age: 27 Year
  Sex: Female

DRUGS (4)
  1. MAGNESIUM SULFATE. [Concomitant]
     Active Substance: MAGNESIUM SULFATE
     Indication: PRODUCT USED FOR UNKNOWN INDICATION
     Dosage: UNK
     Route: 065
  2. SOLIRIS [Suspect]
     Active Substance: ECULIZUMAB
     Indication: PAROXYSMAL NOCTURNAL HAEMOGLOBINURIA
     Dosage: 900 MG, Q2W
     Route: 042
     Dates: start: 20110906, end: 20141010
  3. SOLIRIS [Suspect]
     Active Substance: ECULIZUMAB
     Dosage: UNK
     Route: 042
  4. CYCLOSPORIN [Concomitant]
     Active Substance: CYCLOSPORINE
     Indication: APLASTIC ANAEMIA
     Dosage: UNK
     Route: 065

REACTIONS (63)
  - Impaired healing [Recovering/Resolving]
  - Blood count abnormal [Unknown]
  - Blood count abnormal [Unknown]
  - Catheter site infection [Not Recovered/Not Resolved]
  - Full blood count decreased [Unknown]
  - Arthritis infective [Unknown]
  - Vomiting [Not Recovered/Not Resolved]
  - Blood urine present [Not Recovered/Not Resolved]
  - Swelling [Recovering/Resolving]
  - Pain in extremity [Unknown]
  - Urinary tract infection [Unknown]
  - Chills [Unknown]
  - Pre-eclampsia [Unknown]
  - Localised infection [Recovering/Resolving]
  - Pyrexia [Unknown]
  - Renal vein thrombosis [Unknown]
  - Anaemia [Unknown]
  - Anxiety [Not Recovered/Not Resolved]
  - Swelling [Unknown]
  - Drug screen positive [Unknown]
  - Device related infection [Unknown]
  - Dyspnoea [Not Recovered/Not Resolved]
  - Malaise [Not Recovered/Not Resolved]
  - Panic attack [Not Recovered/Not Resolved]
  - Full blood count decreased [Recovered/Resolved]
  - Crying [Not Recovered/Not Resolved]
  - Myalgia [Unknown]
  - Chromaturia [Not Recovered/Not Resolved]
  - Vomiting [Unknown]
  - Laboratory test abnormal [Unknown]
  - Breast abscess [Recovering/Resolving]
  - Haemoglobin abnormal [Unknown]
  - Depression suicidal [Not Recovered/Not Resolved]
  - Malaise [Unknown]
  - Hypoaesthesia [Unknown]
  - Feeling abnormal [Unknown]
  - Sepsis [Not Recovered/Not Resolved]
  - Hypertension [Not Recovered/Not Resolved]
  - Chest pain [Unknown]
  - Fear [Unknown]
  - Fatigue [Unknown]
  - Pyrexia [Unknown]
  - Dyspnoea [Unknown]
  - Sepsis [Unknown]
  - Pallor [Unknown]
  - Rash papular [Unknown]
  - Vomiting [Unknown]
  - Exposure during pregnancy [Recovered/Resolved]
  - Hepatomegaly [Unknown]
  - Headache [Unknown]
  - Red blood cell count abnormal [Unknown]
  - Medical device complication [Unknown]
  - Nausea [Unknown]
  - Hot flush [Unknown]
  - Unevaluable event [Unknown]
  - Deep vein thrombosis [Unknown]
  - Loss of consciousness [Unknown]
  - Breast mass [Unknown]
  - Cellulitis [Not Recovered/Not Resolved]
  - Depressed mood [Not Recovered/Not Resolved]
  - Treatment noncompliance [Not Recovered/Not Resolved]
  - Pain [Unknown]
  - Dyspnoea [Unknown]

NARRATIVE: CASE EVENT DATE: 2014
